FAERS Safety Report 9116222 (Version 2)
Quarter: 2013Q2

REPORT INFORMATION
  Report Type: Spontaneous
  Country: US (occurrence: US)
  Receive Date: 20130225
  Receipt Date: 20130409
  Transmission Date: 20140414
  Serious: No
  Sender: FDA-Public Use
  Company Number: US-ALEXION-A201300265

PATIENT
  Age: 19 Year
  Sex: Male

DRUGS (9)
  1. SOLIRIS 300MG [Suspect]
     Indication: HAEMOLYTIC URAEMIC SYNDROME
     Dosage: 1200 MG, Q2W
     Route: 042
     Dates: start: 20111031
  2. ENALAPRIL [Concomitant]
     Dosage: 10 MG, QD
  3. FERRALET [Concomitant]
     Dosage: 90 MG, QD
  4. MAGNESIUM OXIDE [Concomitant]
     Dosage: 400 MG, QD
  5. MYFORTIC [Concomitant]
     Dosage: 360 MG, BID
  6. NIFEDIPINE [Concomitant]
     Indication: HYPERTENSION
     Dosage: 10 MG, PRN
  7. PENICILLIN V [Concomitant]
     Dosage: 250 MG, BID
  8. PREDNISONE [Concomitant]
     Dosage: 5 MG, QD
  9. TACROLIMUS [Concomitant]
     Dosage: 2.5 MG, BID

REACTIONS (2)
  - Foot fracture [Unknown]
  - Arthralgia [Unknown]
